FAERS Safety Report 8908405 (Version 2)
Quarter: 2013Q1

REPORT INFORMATION
  Report Type: Spontaneous
  Country: US (occurrence: US)
  Receive Date: 20121114
  Receipt Date: 20130118
  Transmission Date: 20140127
  Serious: No
  Sender: FDA-Public Use
  Company Number: US-PFIZER INC-2012284081

PATIENT
  Age: 41 Year
  Sex: Male
  Weight: 76.19 kg

DRUGS (3)
  1. EFFEXOR [Suspect]
     Indication: DEPRESSION
     Dosage: 75 MG, DAILY
     Route: 048
     Dates: start: 2007, end: 201211
  2. EFFEXOR XR [Suspect]
     Indication: DEPRESSION
     Dosage: 75 MG, DAILY
     Route: 048
  3. PRISTIQ [Suspect]
     Indication: DEPRESSION
     Dosage: UNK, DAILY
     Route: 048

REACTIONS (4)
  - Drug withdrawal syndrome [Unknown]
  - Headache [Unknown]
  - Asthenia [Unknown]
  - Drug dose omission [Unknown]
